FAERS Safety Report 10465840 (Version 3)
Quarter: 2014Q4

REPORT INFORMATION
  Report Type: Spontaneous
  Country: IT (occurrence: IT)
  Receive Date: 20140921
  Receipt Date: 20141128
  Transmission Date: 20150528
  Serious: Yes (Hospitalization, Other)
  Sender: FDA-Public Use
  Company Number: IT-BRISTOL-MYERS SQUIBB COMPANY-21393988

PATIENT
  Age: 32 Year
  Sex: Female

DRUGS (3)
  1. COUMADIN [Suspect]
     Active Substance: WARFARIN SODIUM
     Indication: DEEP VEIN THROMBOSIS
     Dosage: INTER ON 02-AUG-2014,?RESUME ON:11-AUG-2014
     Route: 048
     Dates: start: 20040801
  2. LUCEN [Concomitant]
     Active Substance: ESOMEPRAZOLE
     Indication: ABDOMINAL PAIN UPPER
     Dosage: 40 MG TABS
     Dates: start: 20140719, end: 20140802
  3. GAVISCON [Concomitant]
     Active Substance: ALUMINUM HYDROXIDE\MAGNESIUM CARBONATE
     Indication: ABDOMINAL PAIN UPPER
     Dosage: 500MG/10ML ORAL SUSPENSION
     Route: 048
     Dates: start: 20140719, end: 20140802

REACTIONS (7)
  - Abdominal pain [Unknown]
  - Contusion [Unknown]
  - Gastroduodenitis [Unknown]
  - Haematoma [Unknown]
  - Conjunctival haemorrhage [Unknown]
  - Overdose [Unknown]
  - Hypokalaemia [Unknown]

NARRATIVE: CASE EVENT DATE: 20140802
